FAERS Safety Report 12038880 (Version 1)
Quarter: 2016Q1

REPORT INFORMATION
  Report Type: Spontaneous
  Country: US (occurrence: None)
  Receive Date: 20160205
  Receipt Date: 20160205
  Transmission Date: 20160526
  Serious: Yes (Other)
  Sender: FDA-Public Use
  Company Number: None

PATIENT
  Age: 57 Year
  Sex: Male

DRUGS (2)
  1. QUETIAPINE FUMARATE 100 MG [Suspect]
     Active Substance: QUETIAPINE FUMARATE
     Indication: GENERALISED ANXIETY DISORDER
     Dosage: 100 MG QD PO @ HS
     Route: 048
     Dates: start: 2008
  2. QUETIAPINE FUMARATE 100 MG [Suspect]
     Active Substance: QUETIAPINE FUMARATE
     Indication: MAJOR DEPRESSION
     Dosage: 100 MG QD PO @ HS
     Route: 048
     Dates: start: 2008

REACTIONS (2)
  - Drug ineffective [None]
  - Suicidal ideation [None]

NARRATIVE: CASE EVENT DATE: 2008
